FAERS Safety Report 22055464 (Version 1)
Quarter: 2023Q1

REPORT INFORMATION
  Report Type: Spontaneous
  Country: US (occurrence: US)
  Receive Date: 20230302
  Receipt Date: 20230302
  Transmission Date: 20230418
  Serious: Yes (Other)
  Sender: FDA-Public Use
  Company Number: US-BRISTOL-MYERS SQUIBB COMPANY-2023-029961

PATIENT
  Age: 71 Year
  Sex: Male
  Weight: 57.15 kg

DRUGS (1)
  1. REVLIMID [Suspect]
     Active Substance: LENALIDOMIDE
     Indication: Product used for unknown indication
     Dosage: 21D ON 7D OFF
     Route: 048
     Dates: start: 20210501

REACTIONS (1)
  - Neutropenia [Recovering/Resolving]
